FAERS Safety Report 4845834-4 (Version None)
Quarter: 2005Q4

REPORT INFORMATION
  Report Type: 
  Country: None (occurrence: None)
  Receive Date: 20051206
  Receipt Date: 20051130
  Transmission Date: 20060501
  Serious: Yes (Hospitalization)
  Sender: FDA-Public Use
  Company Number: US-GLAXOSMITHKLINE-A0584112A

PATIENT
  Age: 21 Year
  Sex: Female

DRUGS (2)
  1. WELLBUTRIN XL [Suspect]
     Indication: DEPRESSION
     Route: 048
     Dates: start: 20051114, end: 20051125
  2. NO CONCURRENT MEDICATION [Concomitant]

REACTIONS (6)
  - ANOREXIA [None]
  - CHEST PAIN [None]
  - MUSCLE TIGHTNESS [None]
  - PALPITATIONS [None]
  - TREMOR [None]
  - WEIGHT DECREASED [None]
